FAERS Safety Report 19069395 (Version 3)
Quarter: 2021Q3

REPORT INFORMATION
  Report Type: Report from Study
  Country: US (occurrence: US)
  Receive Date: 20210329
  Receipt Date: 20210823
  Transmission Date: 20211014
  Serious: No
  Sender: FDA-Public Use
  Company Number: NVSC2021US065947

PATIENT
  Sex: Female

DRUGS (1)
  1. KESIMPTA [Suspect]
     Active Substance: OFATUMUMAB
     Indication: RELAPSING MULTIPLE SCLEROSIS
     Dosage: UNK UNK, QMO
     Route: 058
     Dates: start: 20210129

REACTIONS (3)
  - Product dose omission issue [Unknown]
  - Oral candidiasis [Unknown]
  - Mouth ulceration [Recovered/Resolved]
